FAERS Safety Report 8921567 (Version 2)
Quarter: 2012Q4

REPORT INFORMATION
  Report Type: 
  Country: IT (occurrence: IT)
  Receive Date: 20121121
  Receipt Date: 20121129
  Transmission Date: 20130627
  Serious: Yes (Hospitalization)
  Sender: FDA-Public Use
  Company Number: IT-TEVA-371167ISR

PATIENT
  Age: 87 Year
  Sex: Female

DRUGS (6)
  1. DICLOFENAC [Suspect]
     Indication: ARTHRALGIA
     Route: 048
     Dates: start: 20121113, end: 20121114
  2. PEPTAZOL [Concomitant]
  3. TRIATEC [Concomitant]
  4. NORVASC [Concomitant]
  5. TAVOR [Concomitant]
  6. FOLINA [Concomitant]

REACTIONS (3)
  - Abdominal pain lower [Unknown]
  - Abdominal pain upper [Unknown]
  - Acute abdomen [Unknown]
